FAERS Safety Report 5670168-8 (Version None)
Quarter: 2008Q1

REPORT INFORMATION
  Report Type: 
  Country: None (occurrence: None)
  Receive Date: 20080312
  Receipt Date: 20080205
  Transmission Date: 20080703
  Serious: Yes (Hospitalization)
  Sender: FDA-Public Use
  Company Number: 20080001USST

PATIENT
  Age: 30 Year
  Sex: Male

DRUGS (3)
  1. LEVOCARNITINE AMPOULES ORAL SOLUTION [Suspect]
     Dosage: PO
     Route: 048
  2. RISPERIDONE [Concomitant]
  3. RISPERIDONE [Concomitant]

REACTIONS (16)
  - ABDOMINAL DISCOMFORT [None]
  - AGGRESSION [None]
  - AMNESIA [None]
  - BLOOD PRESSURE INCREASED [None]
  - COGNITIVE DISORDER [None]
  - DEPRESSION [None]
  - DISORIENTATION [None]
  - FEAR [None]
  - HALLUCINATIONS, MIXED [None]
  - HEART RATE INCREASED [None]
  - ILLUSION [None]
  - PERSECUTORY DELUSION [None]
  - PSYCHOMOTOR HYPERACTIVITY [None]
  - SPEECH DISORDER [None]
  - THINKING ABNORMAL [None]
  - VOMITING [None]
